FAERS Safety Report 13383177 (Version 3)
Quarter: 2017Q2

REPORT INFORMATION
  Report Type: Spontaneous
  Country: US (occurrence: US)
  Receive Date: 20170329
  Receipt Date: 20170524
  Transmission Date: 20170830
  Serious: Yes (Other)
  Sender: FDA-Public Use
  Company Number: US-BAYER-2017-056629

PATIENT
  Age: 41 Year
  Sex: Female
  Weight: 69.39 kg

DRUGS (1)
  1. MIRENA [Suspect]
     Active Substance: LEVONORGESTREL
     Indication: CONTRACEPTION
     Dosage: 20 MCG/24HR, CONT
     Route: 015
     Dates: start: 20130625, end: 20170302

REACTIONS (5)
  - Drug ineffective [None]
  - Uterine haemorrhage [None]
  - Abortion spontaneous [None]
  - Device dislocation [None]
  - Pregnancy with contraceptive device [None]

NARRATIVE: CASE EVENT DATE: 20170302
